FAERS Safety Report 10418100 (Version 3)
Quarter: 2014Q4

REPORT INFORMATION
  Report Type: Spontaneous
  Country: US (occurrence: None)
  Receive Date: 20140827
  Receipt Date: 20141117
  Transmission Date: 20150528
  Serious: Yes (Other)
  Sender: FDA-Public Use
  Company Number: 2014-US-010395

PATIENT
  Age: 55 Year
  Sex: Female

DRUGS (1)
  1. XYREM [Suspect]
     Active Substance: SODIUM OXYBATE
     Indication: NARCOLEPSY
     Route: 048
     Dates: start: 200511, end: 2005

REACTIONS (5)
  - Tachyphrenia [None]
  - Therapeutic response decreased [None]
  - Drug effect decreased [None]
  - Intentional overdose [None]
  - Hepatic enzyme increased [None]

NARRATIVE: CASE EVENT DATE: 2011
